FAERS Safety Report 16351258 (Version 1)
Quarter: 2019Q2

REPORT INFORMATION
  Report Type: Other
  Country: CA (occurrence: CA)
  Receive Date: 20190524
  Receipt Date: 20190524
  Transmission Date: 20190711
  Serious: Yes (Other)
  Sender: FDA-Public Use
  Company Number: CA-APOTEX-2019AP014537

PATIENT
  Age: 43 Year
  Sex: Female

DRUGS (7)
  1. RANITIDINE. [Concomitant]
     Active Substance: RANITIDINE
     Indication: PREMEDICATION
     Dosage: 150 MG, UNK
     Route: 048
  2. ALEMTUZUMAB [Suspect]
     Active Substance: ALEMTUZUMAB
     Indication: RELAPSING-REMITTING MULTIPLE SCLEROSIS
     Dosage: 12 MG, QD VIA INTRAVENOUS DRIP
     Route: 042
  3. ACICLOVIR [Concomitant]
     Active Substance: ACYCLOVIR
     Indication: PREMEDICATION
     Dosage: 200 MG, Q.12H
     Route: 048
  4. CETIRIZINE [Suspect]
     Active Substance: CETIRIZINE HYDROCHLORIDE
     Indication: RASH
     Dosage: 10 MG, UNK
     Route: 048
  5. CETIRIZINE [Suspect]
     Active Substance: CETIRIZINE HYDROCHLORIDE
     Indication: PREMEDICATION
     Dosage: UNK
     Route: 065
  6. METHYLPREDNISOLONE. [Concomitant]
     Active Substance: METHYLPREDNISOLONE
     Indication: PREMEDICATION
     Dosage: 1 G, UNK
     Route: 042
  7. PARACETAMOL [Concomitant]
     Active Substance: ACETAMINOPHEN
     Indication: PREMEDICATION
     Dosage: UNK
     Route: 048

REACTIONS (19)
  - Bradycardia [Not Recovered/Not Resolved]
  - Monocyte count increased [Not Recovered/Not Resolved]
  - Haemoglobin urine present [Not Recovered/Not Resolved]
  - Red cell distribution width decreased [Not Recovered/Not Resolved]
  - Eye disorder [Not Recovered/Not Resolved]
  - Eczema [Not Recovered/Not Resolved]
  - Urine abnormality [Not Recovered/Not Resolved]
  - Fatigue [Not Recovered/Not Resolved]
  - Lymphocyte count decreased [Not Recovered/Not Resolved]
  - Blood thyroid stimulating hormone abnormal [Not Recovered/Not Resolved]
  - Neutrophil count decreased [Not Recovered/Not Resolved]
  - Rash papular [Not Recovered/Not Resolved]
  - Red blood cells urine positive [Not Recovered/Not Resolved]
  - White blood cells urine positive [Not Recovered/Not Resolved]
  - White blood cell count decreased [Not Recovered/Not Resolved]
  - Hypotension [Not Recovered/Not Resolved]
  - Eosinophil count increased [Not Recovered/Not Resolved]
  - Dry eye [Not Recovered/Not Resolved]
  - Neck mass [Not Recovered/Not Resolved]
